FAERS Safety Report 19435117 (Version 1)
Quarter: 2021Q2

REPORT INFORMATION
  Report Type: Spontaneous
  Country: MX (occurrence: MX)
  Receive Date: 20210617
  Receipt Date: 20210617
  Transmission Date: 20210717
  Serious: Yes (Other)
  Sender: FDA-Public Use
  Company Number: MX-BAXTER-2021BAX016764

PATIENT
  Age: 14 Year
  Sex: Male
  Weight: 32 kg

DRUGS (1)
  1. DIANEAL W/ DEXTROSE 1.5% [Suspect]
     Active Substance: CALCIUM CHLORIDE\DEXTROSE\MAGNESIUM CHLORIDE\SODIUM CHLORIDE\SODIUM LACTATE
     Indication: PERITONEAL DIALYSIS
     Route: 033

REACTIONS (3)
  - Seizure [Unknown]
  - Abdominal pain [Unknown]
  - Flushing [Unknown]

NARRATIVE: CASE EVENT DATE: 20210613
